FAERS Safety Report 11216165 (Version 1)
Quarter: 2015Q2

REPORT INFORMATION
  Report Type: Spontaneous
  Country: US (occurrence: None)
  Receive Date: 20150623
  Receipt Date: 20150623
  Transmission Date: 20150821
  Serious: Yes (Disabling, Other)
  Sender: FDA-Public Use
  Company Number: None

PATIENT
  Age: 51 Year
  Sex: Female
  Weight: 77.11 kg

DRUGS (3)
  1. BUPROPEN HCL [Concomitant]
  2. OMEPRAZOLE. [Concomitant]
     Active Substance: OMEPRAZOLE
  3. CHANTIX [Suspect]
     Active Substance: VARENICLINE TARTRATE
     Indication: EX-TOBACCO USER
     Route: 048
     Dates: start: 20090615, end: 20090901

REACTIONS (11)
  - Learning disorder [None]
  - Cognitive disorder [None]
  - Depression [None]
  - Amnesia [None]
  - Memory impairment [None]
  - Activities of daily living impaired [None]
  - Aggression [None]
  - Crying [None]
  - Impaired work ability [None]
  - Abnormal dreams [None]
  - Weight increased [None]

NARRATIVE: CASE EVENT DATE: 20090615
